FAERS Safety Report 6375769-X (Version None)
Quarter: 2009Q3

REPORT INFORMATION
  Report Type: 
  Country: None (occurrence: None)
  Receive Date: 20090922
  Receipt Date: 20090922
  Transmission Date: 20100115
  Serious: Yes (Life-Threatening)
  Sender: FDA-Public Use
  Company Number: None

PATIENT
  Age: 76 Year
  Sex: Female
  Weight: 43.0917 kg

DRUGS (1)
  1. VITAMIN C 1000 MG NATURE MADE [Suspect]
     Indication: VITAMIN SUPPLEMENTATION
     Dosage: ONE A DAY
     Dates: start: 20090908, end: 20090909

REACTIONS (5)
  - CHOKING [None]
  - DYSPHAGIA [None]
  - LACRIMATION INCREASED [None]
  - OROPHARYNGEAL PAIN [None]
  - PRODUCT COLOUR ISSUE [None]
